FAERS Safety Report 16091229 (Version 1)
Quarter: 2019Q1

REPORT INFORMATION
  Report Type: Spontaneous
  Country: IE (occurrence: IE)
  Receive Date: 20190319
  Receipt Date: 20190319
  Transmission Date: 20190418
  Serious: Yes (Other)
  Sender: FDA-Public Use
  Company Number: IE-GLAXOSMITHKLINE-IE2019GSK048239

PATIENT
  Age: 64 Year
  Sex: Male

DRUGS (4)
  1. VENTOLIN [Suspect]
     Active Substance: ALBUTEROL SULFATE
     Indication: PRODUCT USED FOR UNKNOWN INDICATION
     Dosage: UNK
  2. METHOTREXATE. [Concomitant]
     Active Substance: METHOTREXATE
     Indication: PRODUCT USED FOR UNKNOWN INDICATION
     Dosage: UNK
  3. SYMBICORT [Concomitant]
     Active Substance: BUDESONIDE\FORMOTEROL FUMARATE DIHYDRATE
     Indication: PRODUCT USED FOR UNKNOWN INDICATION
     Dosage: UNK
  4. NASOBEC [Concomitant]
     Active Substance: BECLOMETHASONE DIPROPIONATE
     Indication: PRODUCT USED FOR UNKNOWN INDICATION
     Dosage: UNK

REACTIONS (7)
  - Sinusitis [Unknown]
  - Sputum discoloured [Unknown]
  - Eosinophilic granulomatosis with polyangiitis [Unknown]
  - Increased bronchial secretion [Unknown]
  - Nasal discharge discolouration [Unknown]
  - Lower respiratory tract infection [Unknown]
  - Malaise [Unknown]

NARRATIVE: CASE EVENT DATE: 2011
